FAERS Safety Report 5288462-1 (Version None)
Quarter: 2007Q2

REPORT INFORMATION
  Report Type: 
  Country: None (occurrence: None)
  Receive Date: 20070405
  Receipt Date: 20070323
  Transmission Date: 20071010
  Serious: Yes (Other)
  Sender: FDA-Public Use
  Company Number: CH-ROCHE-489575

PATIENT
  Age: 48 Year
  Sex: Male

DRUGS (8)
  1. PEGASYS [Suspect]
     Route: 058
     Dates: start: 20070202, end: 20070223
  2. SIMCORA [Suspect]
     Route: 048
     Dates: start: 20060313, end: 20070223
  3. CARVEDILOL [Concomitant]
     Indication: ISCHAEMIC CARDIOMYOPATHY
     Route: 048
  4. LISINOPRIL [Concomitant]
     Indication: ESSENTIAL HYPERTENSION
  5. ASPIRIN [Concomitant]
     Dosage: GENERIC REPORTED AS ACETYLSALICYTIC ACID.
     Route: 048
     Dates: start: 20060515
  6. TORSEMIDE [Concomitant]
     Indication: ESSENTIAL HYPERTENSION
     Route: 048
     Dates: start: 20060615
  7. CALCIUM CARBONATE [Concomitant]
     Route: 048
     Dates: start: 20060615
  8. CHOLESTYRAMINE [Concomitant]
     Route: 048
     Dates: start: 20070209, end: 20070216

REACTIONS (3)
  - BLOOD CREATINE PHOSPHOKINASE INCREASED [None]
  - MYOGLOBINURIA [None]
  - RHABDOMYOLYSIS [None]
